FAERS Safety Report 7312461-9 (Version None)
Quarter: 2011Q1

REPORT INFORMATION
  Report Type: 
  Country: None (occurrence: None)
  Receive Date: 20110224
  Receipt Date: 20110215
  Transmission Date: 20110831
  Serious: Yes (Other)
  Sender: FDA-Public Use
  Company Number: US-ROCHE-734595

PATIENT
  Sex: Male
  Weight: 76.2 kg

DRUGS (1)
  1. ACCUTANE [Suspect]
     Indication: ACNE
     Route: 065
     Dates: start: 20050101, end: 20060101

REACTIONS (12)
  - COLITIS ULCERATIVE [None]
  - DIVERTICULUM [None]
  - ANAEMIA [None]
  - HYPERTROPHIC ANAL PAPILLA [None]
  - CROHN'S DISEASE [None]
  - GASTROINTESTINAL INJURY [None]
  - DEPRESSION [None]
  - BIPOLAR DISORDER [None]
  - INFLAMMATORY BOWEL DISEASE [None]
  - HAEMORRHOIDS [None]
  - ANAL FISSURE [None]
  - SUICIDAL IDEATION [None]
